FAERS Safety Report 5169783-X (Version None)
Quarter: 2006Q4

REPORT INFORMATION
  Report Type: 
  Country: None (occurrence: None)
  Receive Date: 20061212
  Receipt Date: 20061201
  Transmission Date: 20070319
  Serious: Yes (Death, Other)
  Sender: FDA-Public Use
  Company Number: IT-JNJFOC-20061003488

PATIENT
  Sex: Male
  Weight: 52 kg

DRUGS (2)
  1. ORTHOCLONE OKT3 [Suspect]
     Indication: IMMUNOSUPPRESSANT DRUG THERAPY
     Route: 065
  2. ATGAM [Suspect]
     Indication: IMMUNOSUPPRESSANT DRUG THERAPY
     Route: 042

REACTIONS (2)
  - DEATH [None]
  - LYMPHOPROLIFERATIVE DISORDER [None]
